FAERS Safety Report 8760796 (Version 1)
Quarter: 2012Q4

REPORT INFORMATION
  Report Type: 
  Country: BR (occurrence: BR)
  Receive Date: 20120830
  Receipt Date: 20120830
  Transmission Date: 20130627
  Serious: Yes (Hospitalization)
  Sender: FDA-Public Use
  Company Number: BR-SANOFI-AVENTIS-2012SA061083

PATIENT
  Age: 93 Year
  Sex: Female
  Weight: 86 kg

DRUGS (9)
  1. LANTUS [Suspect]
     Indication: DIABETES
     Route: 058
     Dates: start: 2008
  2. DEVICE [Suspect]
     Indication: DEVICE THERAPY
     Dates: start: 2008
  3. CARVEDILOL [Suspect]
     Route: 048
  4. ESOMEPRAZOLE [Suspect]
     Indication: GASTRIC DISORDER
     Route: 048
  5. LOSARTAN [Concomitant]
     Indication: HYPERTENSION
     Route: 048
  6. MONOCORDIL [Concomitant]
     Route: 048
  7. PLAVIX [Concomitant]
     Route: 048
  8. RISPERIDONE [Concomitant]
     Indication: SEDATIVE THERAPY
     Route: 048
  9. SOMALGIN [Concomitant]
     Route: 048

REACTIONS (1)
  - Cerebrovascular accident [Recovered/Resolved]
